FAERS Safety Report 4590982-X (Version None)
Quarter: 2005Q1

REPORT INFORMATION
  Report Type: 
  Country: None (occurrence: None)
  Receive Date: 20050225
  Receipt Date: 20050216
  Transmission Date: 20050727
  Serious: Yes (Other)
  Sender: FDA-Public Use
  Company Number: PHEH2005US02130

PATIENT
  Age: 77 Year
  Sex: Female

DRUGS (4)
  1. ZELNORM [Suspect]
     Indication: IRRITABLE BOWEL SYNDROME
     Dosage: 6 MG, BID
     Route: 048
     Dates: start: 20040101
  2. PLAVIX [Concomitant]
  3. AMARYL [Concomitant]
  4. ANTIHYPERTENSIVE DRUGS [Concomitant]

REACTIONS (4)
  - CHROMATURIA [None]
  - HAEMATURIA [None]
  - RENAL PAIN [None]
  - URINE ODOUR ABNORMAL [None]
